FAERS Safety Report 10283751 (Version 1)
Quarter: 2014Q3

REPORT INFORMATION
  Report Type: Spontaneous
  Country: AT (occurrence: None)
  Receive Date: 20140703
  Receipt Date: 20140703
  Transmission Date: 20150326
  Serious: Yes (Other)
  Sender: FDA-Public Use
  Company Number: AT-20140008

PATIENT
  Age: 57 Year
  Sex: Female
  Weight: 89 kg

DRUGS (1)
  1. DOTAREM [Suspect]
     Active Substance: GADOTERATE MEGLUMINE
     Indication: NUCLEAR MAGNETIC RESONANCE IMAGING
     Dosage: (18 ML, 1 IN 1 D)   (NOT OTHERWISE SPECIFIED)
     Route: 042
     Dates: start: 20140610, end: 20140610

REACTIONS (4)
  - Swelling [None]
  - Erythema [None]
  - Dyspnoea [None]
  - Hyperaemia [None]

NARRATIVE: CASE EVENT DATE: 20140610
